FAERS Safety Report 16789807 (Version 1)
Quarter: 2019Q3

REPORT INFORMATION
  Report Type: Spontaneous
  Country: US (occurrence: US)
  Receive Date: 20190719
  Receipt Date: 20190719
  Transmission Date: 20191005
  Serious: No
  Sender: FDA-Public Use
  Company Number: None

PATIENT
  Age: 45 Year
  Sex: Male

DRUGS (1)
  1. SPRYCEL [Suspect]
     Active Substance: DASATINIB
     Indication: CHRONIC MYELOID LEUKAEMIA
     Route: 048
     Dates: start: 201903, end: 201907

REACTIONS (7)
  - Diarrhoea [None]
  - Chronic myeloid leukaemia [None]
  - Nausea [None]
  - Fatigue [None]
  - Headache [None]
  - Neoplasm progression [None]
  - Vomiting [None]

NARRATIVE: CASE EVENT DATE: 20190719
